FAERS Safety Report 9007804 (Version 1)
Quarter: 2013Q1

REPORT INFORMATION
  Report Type: Spontaneous
  Country: US (occurrence: US)
  Receive Date: 20130111
  Receipt Date: 20130111
  Transmission Date: 20140127
  Serious: Yes (Other)
  Sender: FDA-Public Use
  Company Number: US-009507513-0909USA03372

PATIENT
  Age: 8 Year
  Sex: Male
  Weight: 32.21 kg

DRUGS (1)
  1. SINGULAIR [Suspect]
     Indication: ASTHMA
     Dosage: 5 MG, QD
     Route: 048

REACTIONS (5)
  - Arthralgia [Unknown]
  - Mood swings [Unknown]
  - Morbid thoughts [Unknown]
  - Pain in extremity [Unknown]
  - Rash [Unknown]
